FAERS Safety Report 5076012-4 (Version None)
Quarter: 2006Q3

REPORT INFORMATION
  Report Type: 
  Country: None (occurrence: None)
  Receive Date: 20060808
  Receipt Date: 20060808
  Transmission Date: 20061208
  Serious: Yes (Hospitalization)
  Sender: FDA-Public Use
  Company Number: None

PATIENT
  Sex: Male

DRUGS (3)
  1. PACLITAXEL [Suspect]
     Dosage: 50 MG/M2, WEEKLY
  2. CARBOPLATIN [Suspect]
     Dosage: 2 AUC
  3. ERBITUX [Suspect]
     Dosage: SEE IMAGE

REACTIONS (4)
  - HAEMATOCHEZIA [None]
  - NAUSEA [None]
  - ORTHOSTATIC HYPOTENSION [None]
  - THERAPY NON-RESPONDER [None]
